FAERS Safety Report 10487114 (Version 1)
Quarter: 2014Q4

REPORT INFORMATION
  Report Type: Spontaneous
  Country: IT (occurrence: ZA)
  Receive Date: 20141001
  Receipt Date: 20141001
  Transmission Date: 20150528
  Serious: Yes (Hospitalization)
  Sender: FDA-Public Use
  Company Number: ZA-FRI-1000071106

PATIENT
  Sex: Female

DRUGS (1)
  1. FOSFOMYCIN [Suspect]
     Active Substance: FOSFOMYCIN
     Dosage: 1 DF, SINGLE
     Route: 048

REACTIONS (3)
  - Hypersensitivity [Unknown]
  - Swelling face [Unknown]
  - Rash [Unknown]
